FAERS Safety Report 8494867-8 (Version None)
Quarter: 2012Q3

REPORT INFORMATION
  Report Type: 
  Country: None (occurrence: None)
  Receive Date: 20120709
  Receipt Date: 20120627
  Transmission Date: 20120928
  Serious: Yes (Hospitalization)
  Sender: FDA-Public Use
  Company Number: FR-NOVOPROD-354340

PATIENT
  Age: 44 Year
  Sex: Male

DRUGS (9)
  1. REPAGLINIDE [Concomitant]
     Dosage: 2 MG, TID
  2. NOVOMIX 30 [Suspect]
     Dosage: 8 IU, QD
  3. NOVOMIX 30 [Suspect]
     Dosage: 6 IU, QD
  4. NOVOMIX 50 [Suspect]
     Indication: DIABETES MELLITUS
     Dosage: (8+10) IU, UNK
  5. REPAGLINIDE [Concomitant]
     Dosage: 1 MG, TID
  6. NOVOMIX 50 [Suspect]
     Dosage: (6+8) IU, UNK
  7. LANTUS [Concomitant]
     Dosage: 16 IU, QD
  8. NOVOMIX 30 [Suspect]
     Indication: DIABETES MELLITUS
     Dosage: 14 IU, QD
  9. NOVORAPID [Concomitant]
     Indication: DIABETES MELLITUS
     Dosage: 2 IU, QD

REACTIONS (3)
  - HYPOGLYCAEMIA [None]
  - INTENTIONAL DRUG MISUSE [None]
  - HYPOGLYCAEMIC COMA [None]
